FAERS Safety Report 17770442 (Version 4)
Quarter: 2020Q2

REPORT INFORMATION
  Report Type: Report from Study
  Country: US (occurrence: US)
  Receive Date: 20200512
  Receipt Date: 20200527
  Transmission Date: 20200714
  Serious: Yes (Hospitalization, Other)
  Sender: FDA-Public Use
  Company Number: US-BIOGEN-2020BI00859115

PATIENT
  Age: 47 Year
  Sex: Female

DRUGS (3)
  1. TECFIDERA [Suspect]
     Active Substance: DIMETHYL FUMARATE
     Dosage: STARTING DOSE
     Route: 048
  2. TECFIDERA [Suspect]
     Active Substance: DIMETHYL FUMARATE
     Dosage: MAINTENANCE DOSE
     Route: 048
  3. TECFIDERA [Suspect]
     Active Substance: DIMETHYL FUMARATE
     Indication: MULTIPLE SCLEROSIS
     Dosage: STARTING DOSE
     Route: 048
     Dates: start: 20200326

REACTIONS (26)
  - Gait inability [Recovered/Resolved]
  - Vomiting [Not Recovered/Not Resolved]
  - Flushing [Recovered/Resolved]
  - Oropharyngeal pain [Recovered/Resolved]
  - Vertigo [Not Recovered/Not Resolved]
  - Cerebral disorder [Not Recovered/Not Resolved]
  - White blood cell count increased [Unknown]
  - Pancreatic disorder [Not Recovered/Not Resolved]
  - Aphasia [Recovered/Resolved]
  - Blood sodium abnormal [Unknown]
  - Multiple sclerosis relapse [Unknown]
  - Oesophageal disorder [Unknown]
  - Nausea [Not Recovered/Not Resolved]
  - Abdominal pain upper [Recovered/Resolved]
  - Neurological symptom [Unknown]
  - Bone swelling [Not Recovered/Not Resolved]
  - Gastrointestinal disorder [Recovered/Resolved]
  - Decreased immune responsiveness [Unknown]
  - Cough [Unknown]
  - Drug ineffective [Unknown]
  - Fatigue [Recovered/Resolved]
  - Blood potassium increased [Recovered/Resolved]
  - Central nervous system lesion [Not Recovered/Not Resolved]
  - Rhinorrhoea [Recovered/Resolved]
  - Oesophageal pain [Not Recovered/Not Resolved]
  - Visual impairment [Unknown]

NARRATIVE: CASE EVENT DATE: 202005
